FAERS Safety Report 8357902-3 (Version None)
Quarter: 2012Q2

REPORT INFORMATION
  Report Type: 
  Country: None (occurrence: None)
  Receive Date: 20120511
  Receipt Date: 20120430
  Transmission Date: 20120825
  Serious: Yes (Hospitalization, Other)
  Sender: FDA-Public Use
  Company Number: 2012P1019346

PATIENT
  Age: 28 Year
  Sex: Male

DRUGS (6)
  1. LORAZEPAM [Concomitant]
  2. PHENYTOIN SODIUM CAP [Concomitant]
  3. VALPROIC ACID [Concomitant]
  4. PROCHLORPERAZINE [Suspect]
     Indication: VOMITING
     Dosage: 2 DOSES;
  5. PROCHLORPERAZINE [Suspect]
     Indication: NAUSEA
     Dosage: 2 DOSES;
  6. BROMOCRIPTINE MESYLATE [Concomitant]

REACTIONS (14)
  - BLOOD UREA INCREASED [None]
  - IMPULSIVE BEHAVIOUR [None]
  - BLOOD CREATINE PHOSPHOKINASE INCREASED [None]
  - WHITE BLOOD CELL COUNT INCREASED [None]
  - NEUROLEPTIC MALIGNANT SYNDROME [None]
  - CONVULSION [None]
  - NAUSEA [None]
  - VOMITING [None]
  - BLOOD SODIUM INCREASED [None]
  - AGITATION [None]
  - CHROMATURIA [None]
  - AGGRESSION [None]
  - NO THERAPEUTIC RESPONSE [None]
  - HYPOKALAEMIA [None]
